FAERS Safety Report 4956580-0 (Version None)
Quarter: 2006Q1

REPORT INFORMATION
  Report Type: 
  Country: None (occurrence: None)
  Receive Date: 20060322
  Receipt Date: 20060309
  Transmission Date: 20060701
  Serious: Yes (Hospitalization)
  Sender: FDA-Public Use
  Company Number: 002#1#2006-00065

PATIENT
  Age: 28 Year
  Sex: Female
  Weight: 46.7205 kg

DRUGS (4)
  1. REGLAN [Suspect]
     Indication: IMPAIRED GASTRIC EMPTYING
     Dosage: 10MG, 4 IN 1 D, 1 IN 1 D ORAL
     Route: 048
     Dates: start: 20060103, end: 20060106
  2. REGLAN [Suspect]
     Indication: IMPAIRED GASTRIC EMPTYING
     Dosage: 10MG, 4 IN 1 D, 1 IN 1 D ORAL
     Route: 048
     Dates: start: 20060106, end: 20060201
  3. REGLAN [Suspect]
     Indication: IMPAIRED GASTRIC EMPTYING
     Dosage: 5MG, 3 I N 1 D; 4 IN 1D, ORAL
     Route: 048
     Dates: start: 20060107, end: 20060201
  4. REGLAN [Suspect]
     Indication: IMPAIRED GASTRIC EMPTYING
     Dosage: 5MG, 3 I N 1 D; 4 IN 1D, ORAL
     Route: 048
     Dates: start: 20060201, end: 20060206

REACTIONS (12)
  - AKATHISIA [None]
  - ANXIETY [None]
  - ASTHENIA [None]
  - DEHYDRATION [None]
  - DEPRESSION [None]
  - ELECTROCARDIOGRAM ABNORMAL [None]
  - EXTRASYSTOLES [None]
  - FEELING ABNORMAL [None]
  - IMPAIRED WORK ABILITY [None]
  - RESTLESSNESS [None]
  - SUICIDAL IDEATION [None]
  - TREMOR [None]
